FAERS Safety Report 6866015-9 (Version None)
Quarter: 2010Q3

REPORT INFORMATION
  Report Type: 
  Country: None (occurrence: None)
  Receive Date: 20100719
  Receipt Date: 20100712
  Transmission Date: 20110219
  Serious: Yes (Death)
  Sender: FDA-Public Use
  Company Number: A-CH2009-26507

PATIENT
  Age: 30 Year
  Sex: Female

DRUGS (2)
  1. TRACLEER [Suspect]
     Indication: PULMONARY ARTERIAL HYPERTENSION
     Dosage: 62.5 MG, BID, ORAL
     Route: 048
     Dates: start: 20080325, end: 20081127
  2. SILDENAFIL CITRATE [Concomitant]

REACTIONS (11)
  - BALLOON ATRIAL SEPTOSTOMY [None]
  - CARDIOMEGALY [None]
  - CONDITION AGGRAVATED [None]
  - DISEASE PROGRESSION [None]
  - DIZZINESS [None]
  - DYSPNOEA [None]
  - HEPATOMEGALY [None]
  - HYPOTENSION [None]
  - NOSOCOMIAL INFECTION [None]
  - PULMONARY ARTERIAL HYPERTENSION [None]
  - UROSEPSIS [None]
